FAERS Safety Report 9146773 (Version 2)
Quarter: 2013Q2

REPORT INFORMATION
  Report Type: Report from Study
  Country: JP (occurrence: JP)
  Receive Date: 20130307
  Receipt Date: 20130508
  Transmission Date: 20140414
  Serious: Yes (Hospitalization)
  Sender: FDA-Public Use
  Company Number: PHHY2013JP022156

PATIENT
  Sex: 0
  Weight: 28 kg

DRUGS (10)
  1. ACZ885 [Suspect]
     Indication: CHRONIC INFANTILE NEUROLOGICAL CUTANEOUS AND ARTICULAR SYNDROME
     Dosage: 55.6 MG, UNK
     Route: 058
     Dates: start: 20120113
  2. ACZ885 [Suspect]
     Dosage: 112 MG, UNK
     Route: 058
     Dates: start: 20120309
  3. ACZ885 [Suspect]
     Dosage: 115 MG, UNK
     Route: 058
     Dates: start: 20120502
  4. ACZ885 [Suspect]
     Dosage: 117 MG, UNK
     Route: 058
     Dates: start: 20120608
  5. MEROPEN [Suspect]
     Dosage: 0.5 G, UNK
     Dates: start: 20120526, end: 20120526
  6. PREDNISOLONE [Concomitant]
  7. SELBEX [Concomitant]
  8. ALFAROL [Concomitant]
  9. ALLEGRA [Concomitant]
     Indication: RHINITIS ALLERGIC
     Dosage: 60 G, UNK
     Route: 048
  10. GASTER D [Concomitant]
     Indication: PROPHYLAXIS
     Dosage: 10 DF, UNK
     Route: 048

REACTIONS (6)
  - Anaphylactic reaction [Recovered/Resolved]
  - Pharyngitis [Recovered/Resolved]
  - Oropharyngeal pain [Recovered/Resolved]
  - Rhinorrhoea [Recovered/Resolved]
  - C-reactive protein increased [Recovered/Resolved]
  - Headache [Unknown]
